FAERS Safety Report 21989549 (Version 1)
Quarter: 2023Q1

REPORT INFORMATION
  Report Type: Spontaneous
  Country: US (occurrence: None)
  Receive Date: 20230214
  Receipt Date: 20230214
  Transmission Date: 20230418
  Serious: No
  Sender: FDA-Public Use
  Company Number: 2023A024952

PATIENT
  Sex: Male

DRUGS (1)
  1. CALQUENCE [Suspect]
     Active Substance: ACALABRUTINIB
     Indication: Chronic lymphocytic leukaemia
     Route: 048
     Dates: start: 20221109

REACTIONS (8)
  - Tinnitus [Unknown]
  - Middle ear effusion [Unknown]
  - Bone pain [Unknown]
  - Muscle spasms [Unknown]
  - Ear pain [Unknown]
  - Ear discomfort [Unknown]
  - Myalgia [Unknown]
  - Product dose omission issue [Unknown]
